FAERS Safety Report 16518603 (Version 1)
Quarter: 2019Q3

REPORT INFORMATION
  Report Type: Spontaneous
  Country: US (occurrence: US)
  Receive Date: 20190702
  Receipt Date: 20190702
  Transmission Date: 20191004
  Serious: No
  Sender: FDA-Public Use
  Company Number: US-GALDERMA-US19003245

PATIENT
  Age: 13 Year
  Sex: Female

DRUGS (12)
  1. PROACTIV MD DEEP CLEANSING FACE WASH [Concomitant]
     Active Substance: COSMETICS
     Indication: ACNE
  2. PROACTIV MD BALANCING TONER [Concomitant]
     Active Substance: COSMETICS
     Indication: SEBORRHOEA
     Route: 061
     Dates: start: 20181225, end: 20190101
  3. PROACTIV MD ADAPALENE ACNE TREATMENT [Suspect]
     Active Substance: ADAPALENE
     Indication: ACNE
  4. PROACTIV GREEN TEA MOISTURIZER [Concomitant]
     Active Substance: COSMETICS
     Indication: SEBORRHOEA
     Route: 061
     Dates: start: 20181225, end: 20190101
  5. PROACTIV EYE BRIGHTENING SERUM [Concomitant]
     Active Substance: COSMETICS
     Indication: ACNE
  6. PROACTIV MD DAILY OIL CONTROL SPF 30 [Suspect]
     Active Substance: AVOBENZONE\OCTISALATE\OCTOCRYLENE
     Indication: SEBORRHOEA
     Route: 061
     Dates: start: 20181225, end: 20190101
  7. PROACTIV MD ADAPALENE ACNE TREATMENT [Suspect]
     Active Substance: ADAPALENE
     Indication: SEBORRHOEA
     Dosage: 0.1%
     Route: 061
     Dates: start: 20181225, end: 20190101
  8. PROACTIV MD DEEP CLEANSING FACE WASH [Concomitant]
     Active Substance: COSMETICS
     Indication: SEBORRHOEA
     Route: 061
     Dates: start: 20181225, end: 20190101
  9. PROACTIV MD DAILY OIL CONTROL SPF 30 [Suspect]
     Active Substance: AVOBENZONE\OCTISALATE\OCTOCRYLENE
     Indication: ACNE
  10. PROACTIV MD BALANCING TONER [Concomitant]
     Active Substance: COSMETICS
     Indication: ACNE
  11. PROACTIV GREEN TEA MOISTURIZER [Concomitant]
     Active Substance: COSMETICS
     Indication: ACNE
  12. PROACTIV EYE BRIGHTENING SERUM [Concomitant]
     Active Substance: COSMETICS
     Indication: SEBORRHOEA
     Route: 061
     Dates: start: 20181225, end: 20190101

REACTIONS (4)
  - Pruritus [Recovering/Resolving]
  - Rash papular [Recovering/Resolving]
  - Erythema [Recovering/Resolving]
  - Dry skin [Recovering/Resolving]

NARRATIVE: CASE EVENT DATE: 20190101
